FAERS Safety Report 12922553 (Version 1)
Quarter: 2016Q4

REPORT INFORMATION
  Report Type: Spontaneous
  Country: US (occurrence: US)
  Receive Date: 20161108
  Receipt Date: 20161108
  Transmission Date: 20170207
  Serious: Yes (Other)
  Sender: FDA-Public Use
  Company Number: None

PATIENT
  Age: 55 Year
  Sex: Female
  Weight: 107.55 kg

DRUGS (2)
  1. LOSARTAN POTASSIUM 100 MG [Suspect]
     Active Substance: LOSARTAN POTASSIUM
     Indication: BLOOD PRESSURE MEASUREMENT
     Dosage: ?          QUANTITY:1 TABLET(S);?
     Route: 048
     Dates: start: 20161104, end: 20161104
  2. LISINOPRIL/HCTZ [Concomitant]
     Active Substance: HYDROCHLOROTHIAZIDE\LISINOPRIL

REACTIONS (9)
  - Hypophagia [None]
  - Chromaturia [None]
  - Back pain [None]
  - Abdominal tenderness [None]
  - Malaise [None]
  - Abdominal pain upper [None]
  - Asthenia [None]
  - Nausea [None]
  - Discomfort [None]

NARRATIVE: CASE EVENT DATE: 20161104
